FAERS Safety Report 8086590-9 (Version None)
Quarter: 2012Q1

REPORT INFORMATION
  Report Type: 
  Country: None (occurrence: None)
  Receive Date: 20120128
  Receipt Date: 20110512
  Transmission Date: 20120608
  Serious: No
  Sender: FDA-Public Use
  Company Number: US-ABBOTT-11P-163-0725175-00

PATIENT
  Sex: Female
  Weight: 75.364 kg

DRUGS (5)
  1. LORTAB [Concomitant]
     Indication: PAIN
     Dosage: AS NEEDED
  2. UNKNOWN HERBS [Concomitant]
     Indication: PRODUCT USED FOR UNKNOWN INDICATION
  3. HUMIRA [Suspect]
     Indication: PSORIATIC ARTHROPATHY
     Dates: start: 20110420
  4. CELEXA [Concomitant]
     Indication: PRODUCT USED FOR UNKNOWN INDICATION
  5. METHOTREXATE [Concomitant]
     Indication: PRODUCT USED FOR UNKNOWN INDICATION

REACTIONS (5)
  - MENSTRUAL DISORDER [None]
  - SINUS HEADACHE [None]
  - NAUSEA [None]
  - SINUSITIS [None]
  - FACIAL PAIN [None]
